FAERS Safety Report 11236003 (Version 1)
Quarter: 2015Q3

REPORT INFORMATION
  Report Type: Report from Study
  Country: CZ (occurrence: CZ)
  Receive Date: 20150702
  Receipt Date: 20150702
  Transmission Date: 20151125
  Serious: Yes (Other)
  Sender: FDA-Public Use
  Company Number: CZ-TEVA-574194ISR

PATIENT
  Age: 24 Year
  Sex: Male

DRUGS (10)
  1. HALOPERIDOL. [Concomitant]
     Active Substance: HALOPERIDOL
     Route: 048
  2. OLANZAPINE. [Suspect]
     Active Substance: OLANZAPINE
     Dosage: 200 MILLIGRAM DAILY;
     Route: 048
  3. LEVOMEPROMAZINE [Concomitant]
     Active Substance: LEVOMEPROMAZINE
     Dosage: 50 MILLIGRAM DAILY;
     Route: 048
  4. LEVOMEPROMAZINE [Concomitant]
     Active Substance: LEVOMEPROMAZINE
     Dosage: 75 MILLIGRAM DAILY;
     Route: 048
  5. QUETIAPINE [Suspect]
     Active Substance: QUETIAPINE
     Dosage: 400 MILLIGRAM DAILY;
     Route: 048
  6. PALIPERIDON [Concomitant]
     Dosage: 9 MILLIGRAM DAILY;
     Route: 048
  7. QUETIAPINE [Suspect]
     Active Substance: QUETIAPINE
     Dosage: 200 MILLIGRAM DAILY;
     Route: 048
  8. ARIPIPRAZOLE. [Concomitant]
     Active Substance: ARIPIPRAZOLE
     Dosage: 5 MILLIGRAM DAILY;
     Route: 048
  9. QUETIAPINE [Suspect]
     Active Substance: QUETIAPINE
     Dosage: 800 MILLIGRAM DAILY;
     Route: 048
  10. RISPERIDONE. [Suspect]
     Active Substance: RISPERIDONE
     Dosage: 6 MILLIGRAM DAILY;
     Route: 048

REACTIONS (6)
  - Alcohol abuse [Unknown]
  - Lipid metabolism disorder [Unknown]
  - Insomnia [Unknown]
  - Amino acid metabolism disorder [Unknown]
  - Sedation [Unknown]
  - Weight increased [Unknown]
